FAERS Safety Report 7905515-7 (Version None)
Quarter: 2011Q4

REPORT INFORMATION
  Report Type: 
  Country: None (occurrence: None)
  Receive Date: 20111110
  Receipt Date: 20111031
  Transmission Date: 20120403
  Serious: No
  Sender: FDA-Public Use
  Company Number: US-BIOGENIDEC-2011BI025852

PATIENT
  Age: 44 Year
  Sex: Female

DRUGS (1)
  1. TYSABRI [Suspect]
     Indication: MULTIPLE SCLEROSIS
     Route: 042
     Dates: start: 20080521

REACTIONS (6)
  - HYPOAESTHESIA [None]
  - PARAESTHESIA [None]
  - WHEEZING [None]
  - PRODUCTIVE COUGH [None]
  - ASTHMA [None]
  - BRONCHITIS [None]
